FAERS Safety Report 4982855-5 (Version None)
Quarter: 2006Q2

REPORT INFORMATION
  Report Type: 
  Country: None (occurrence: None)
  Receive Date: 20060420
  Receipt Date: 20060411
  Transmission Date: 20061013
  Serious: Yes (Other)
  Sender: FDA-Public Use
  Company Number: 222382

PATIENT
  Age: 40 Year
  Sex: Female
  Weight: 120 kg

DRUGS (2)
  1. RITUXIMAB OR PLACEBO (RITUXIMAB) CONC FOR SOLUTION FOR INFUSION [Suspect]
     Indication: SYSTEMIC LUPUS ERYTHEMATOSUS
     Dosage: 1 G, DAYS 1 + 15, INTRAVENOUS
     Route: 042
     Dates: start: 20050616, end: 20051215
  2. PREDNISONE TAB [Concomitant]

REACTIONS (2)
  - IMMUNE RECONSTITUTION SYNDROME [None]
  - LUPUS NEPHRITIS [None]
